FAERS Safety Report 4746925-9 (Version None)
Quarter: 2005Q3

REPORT INFORMATION
  Report Type: 
  Country: None (occurrence: None)
  Receive Date: 20050817
  Receipt Date: 20050815
  Transmission Date: 20060218
  Serious: Yes (Other)
  Sender: FDA-Public Use
  Company Number: JP-SANOFI-SYNTHELABO-F01200501548

PATIENT
  Sex: Male
  Weight: 58 kg

DRUGS (3)
  1. OXALIPLATIN [Suspect]
     Indication: RECTAL CANCER
     Route: 042
     Dates: start: 20050707, end: 20050707
  2. FLUOROURACIL [Suspect]
     Dosage: 600 MG/M2 IV BOLUS (368.1 MG)AND 2454 MG/M2  (4000 MG) IV 22 HOURS CONTINUOUS INFUSION, Q2W
     Route: 042
     Dates: start: 20050707, end: 20050708
  3. CALCIUM LEVOFOLINATE [Suspect]
     Route: 042
     Dates: start: 20050708, end: 20050708

REACTIONS (2)
  - PERITONITIS [None]
  - RECTAL PERFORATION [None]
